FAERS Safety Report 6280596-8 (Version None)
Quarter: 2009Q3

REPORT INFORMATION
  Report Type: 
  Country: None (occurrence: None)
  Receive Date: 20090724
  Receipt Date: 20080912
  Transmission Date: 20100115
  Serious: Yes (Hospitalization)
  Sender: FDA-Public Use
  Company Number: A0748454A

PATIENT
  Age: 61 Year
  Sex: Female
  Weight: 84.1 kg

DRUGS (4)
  1. AVANDIA [Suspect]
     Dosage: 4MG PER DAY
     Route: 048
     Dates: start: 20010101, end: 20070601
  2. METFORMIN HCL [Concomitant]
     Dates: start: 20050101
  3. ACTOS [Concomitant]
     Dates: start: 20050101
  4. GLUCOTROL [Concomitant]
     Dates: start: 19920101

REACTIONS (1)
  - CARDIAC FAILURE CONGESTIVE [None]
